FAERS Safety Report 6861440-4 (Version None)
Quarter: 2010Q3

REPORT INFORMATION
  Report Type: 
  Country: None (occurrence: None)
  Receive Date: 20100715
  Receipt Date: 20100703
  Transmission Date: 20110219
  Serious: Yes (Death)
  Sender: FDA-Public Use
  Company Number: 10-087

PATIENT
  Age: 53 Year
  Sex: Male

DRUGS (1)
  1. PIPERACILLIN AND TAZOBACTAM [Suspect]
     Indication: PERITONEAL INFECTION

REACTIONS (6)
  - ACUTE RESPIRATORY DISTRESS SYNDROME [None]
  - MULTI-ORGAN FAILURE [None]
  - PATHOGEN RESISTANCE [None]
  - STAPHYLOCOCCUS TEST POSITIVE [None]
  - SURGERY [None]
  - UNEVALUABLE EVENT [None]
